FAERS Safety Report 5021408-X (Version None)
Quarter: 2006Q2

REPORT INFORMATION
  Report Type: 
  Country: None (occurrence: None)
  Receive Date: 20060425
  Receipt Date: 20050301
  Transmission Date: 20061013
  Serious: No
  Sender: FDA-Public Use
  Company Number: WAES 0503USA00236

PATIENT
  Sex: Male

DRUGS (1)
  1. SINGULAIR [Suspect]
     Dosage: PO

REACTIONS (1)
  - EAR INFECTION [None]
